FAERS Safety Report 8475281-8 (Version None)
Quarter: 2012Q2

REPORT INFORMATION
  Report Type: 
  Country: None (occurrence: None)
  Receive Date: 20120628
  Receipt Date: 20120621
  Transmission Date: 20120825
  Serious: Yes (Life-Threatening)
  Sender: FDA-Public Use
  Company Number: DE-JNJFOC-20120519839

PATIENT
  Age: 79 Year
  Sex: Male

DRUGS (5)
  1. REOPRO [Suspect]
     Indication: PERCUTANEOUS CORONARY INTERVENTION
     Dosage: 12 HOUR INFUSION
     Route: 040
  2. ASPIRIN [Concomitant]
     Route: 065
  3. HEPARIN [Concomitant]
     Route: 065
  4. CLOPIDOGREL [Concomitant]
     Route: 065
  5. REOPRO [Suspect]
     Route: 040

REACTIONS (3)
  - PETECHIAE [None]
  - SKIN LESION [None]
  - THROMBOCYTOPENIA [None]
